FAERS Safety Report 7503176-2 (Version None)
Quarter: 2011Q2

REPORT INFORMATION
  Report Type: 
  Country: None (occurrence: None)
  Receive Date: 20110525
  Receipt Date: 20101104
  Transmission Date: 20111010
  Serious: No
  Sender: FDA-Public Use
  Company Number: US-NOVEN-ALL1-2010-05798

PATIENT
  Sex: Female
  Weight: 22.676 kg

DRUGS (3)
  1. DAYTRANA [Suspect]
     Dosage: 15 MG, 1X/DAY:QD
     Route: 062
     Dates: start: 20101001
  2. DAYTRANA [Suspect]
     Dosage: 15 MG, 1X/DAY:QD
     Route: 062
     Dates: start: 20100727, end: 20100801
  3. PROZAC [Concomitant]
     Dosage: UNK MG, 1X/DAY:QD
     Route: 048
     Dates: start: 20100101

REACTIONS (4)
  - INSOMNIA [None]
  - DRUG EFFECT DECREASED [None]
  - PRODUCT QUALITY ISSUE [None]
  - EXPIRED DRUG ADMINISTERED [None]
